FAERS Safety Report 8018845-8 (Version None)
Quarter: 2012Q1

REPORT INFORMATION
  Report Type: 
  Country: None (occurrence: None)
  Receive Date: 20120103
  Receipt Date: 20111229
  Transmission Date: 20120608
  Serious: Yes (Other)
  Sender: FDA-Public Use
  Company Number: US-AMGEN-USASP2011067106

PATIENT

DRUGS (1)
  1. ENBREL [Suspect]
     Dosage: 25 MG, QWK
     Route: 064
     Dates: start: 20021201, end: 20030601

REACTIONS (1)
  - FOETAL DISTRESS SYNDROME [None]
